FAERS Safety Report 9250848 (Version 1)
Quarter: 2013Q1

REPORT INFORMATION
  Report Type: Spontaneous
  Country: US (occurrence: None)
  Receive Date: 20130305
  Receipt Date: 20130305
  Transmission Date: 20140127
  Serious: Yes (Hospitalization)
  Sender: FDA-Public Use
  Company Number: 163-21880-12100254

PATIENT
  Age: 72 Year
  Sex: Female
  Weight: 96.62 kg

DRUGS (7)
  1. REVLIMID (LENALIDOMIDE) [Suspect]
     Indication: PLASMA CELL MYELOMA
     Dates: start: 20120913
  2. HCTZ (HYDROCHLOROTHIAZIDE) [Concomitant]
  3. ASPRIN (ACETYLSALICYLIC ACID) [Concomitant]
  4. ATENOLOL (ATENOLOL) [Concomitant]
  5. EXFORGE (AMLODIPINE W/ VALSARTAN) [Concomitant]
  6. FERROUS SULFATE (FERROUS SULFATE) [Concomitant]
  7. VITAMINS [Concomitant]

REACTIONS (1)
  - Neuropathy peripheral [None]
